FAERS Safety Report 6960665-7 (Version None)
Quarter: 2010Q3

REPORT INFORMATION
  Report Type: 
  Country: None (occurrence: None)
  Receive Date: 20100823
  Receipt Date: 20100706
  Transmission Date: 20110219
  Serious: No
  Sender: FDA-Public Use
  Company Number: 15205

PATIENT
  Sex: Female
  Weight: 88.4 kg

DRUGS (5)
  1. CIMZIA [Suspect]
     Indication: CROHN'S DISEASE
     Dosage: (400 MG 1X/MONTH SUBCUTANEOUS)
     Route: 058
     Dates: start: 20091001
  2. METHOTREXATE [Concomitant]
  3. PREVACID [Concomitant]
  4. AMITRIPTYLINE HCL [Concomitant]
  5. XIFAXAN [Concomitant]

REACTIONS (3)
  - BODY TINEA [None]
  - NASOPHARYNGITIS [None]
  - OROPHARYNGEAL PAIN [None]
